FAERS Safety Report 6256215-3 (Version None)
Quarter: 2009Q3

REPORT INFORMATION
  Report Type: 
  Country: None (occurrence: None)
  Receive Date: 20090706
  Receipt Date: 20090630
  Transmission Date: 20100115
  Serious: Yes (Death)
  Sender: FDA-Public Use
  Company Number: PHEH2009US05723

PATIENT
  Age: 49 Year
  Sex: Female

DRUGS (1)
  1. EXJADE [Suspect]
     Indication: APLASTIC ANAEMIA
     Dosage: 1750 MG, QD
     Route: 048
     Dates: end: 20081016

REACTIONS (3)
  - HAEMORRHAGE [None]
  - NO THERAPEUTIC RESPONSE [None]
  - RENAL FAILURE [None]
